FAERS Safety Report 8261670-3 (Version None)
Quarter: 2012Q2

REPORT INFORMATION
  Report Type: 
  Country: None (occurrence: None)
  Receive Date: 20120405
  Receipt Date: 20120405
  Transmission Date: 20120825
  Serious: Yes (Other)
  Sender: FDA-Public Use
  Company Number: None

PATIENT
  Age: 64 Year
  Sex: Male
  Weight: 79.378 kg

DRUGS (1)
  1. CIPROFLOXACIN HCL [Suspect]
     Indication: INFECTION
     Route: 048

REACTIONS (1)
  - TENDON PAIN [None]
